FAERS Safety Report 5692936-9 (Version None)
Quarter: 2008Q2

REPORT INFORMATION
  Report Type: 
  Country: None (occurrence: None)
  Receive Date: 20080328
  Receipt Date: 20070316
  Transmission Date: 20081010
  Serious: Yes (Other)
  Sender: FDA-Public Use
  Company Number: HQWYE024119MAR07

PATIENT
  Age: 41 Year
  Sex: Female
  Weight: 65.83 kg

DRUGS (5)
  1. PROTONIX [Suspect]
     Indication: GASTROOESOPHAGEAL REFLUX DISEASE
     Dosage: 40 MG 1X PER 1 DAY, ORAL
     Route: 048
     Dates: start: 20061001, end: 20070122
  2. SYNTHROID [Concomitant]
  3. DIAZEPAM (DOAZEPAM) [Concomitant]
  4. FISH OIL, HYDROGENATED (FISH OIL, HYDROGENATED) [Concomitant]
  5. ALLEGRA [Concomitant]

REACTIONS (6)
  - GLAUCOMA [None]
  - MUSCLE TWITCHING [None]
  - MUSCULOSKELETAL STIFFNESS [None]
  - NECK PAIN [None]
  - NEURALGIA [None]
  - OPHTHALMOPLEGIA [None]
